FAERS Safety Report 6425886-0 (Version None)
Quarter: 2009Q4

REPORT INFORMATION
  Report Type: 
  Country: None (occurrence: None)
  Receive Date: 20091029
  Receipt Date: 20091016
  Transmission Date: 20100525
  Serious: Yes (Other)
  Sender: FDA-Public Use
  Company Number: AVE_01052_2009

PATIENT
  Age: 38 Year
  Sex: Female
  Weight: 52.1637 kg

DRUGS (5)
  1. NICOTINE TRANSDERMAL SYSTEM (7 MG, 21 MG, 14 MG) [Suspect]
     Indication: DRUG USE FOR UNKNOWN INDICATION
     Dosage: 7 MG QD TRANSDERMAL, 21 MG QD TRANSDERMAL, 14 MG QD TRANSDERMAL
     Route: 062
     Dates: start: 20091001, end: 20091001
  2. NICOTINE TRANSDERMAL SYSTEM (7 MG, 21 MG, 14 MG) [Suspect]
     Indication: DRUG USE FOR UNKNOWN INDICATION
     Dosage: 7 MG QD TRANSDERMAL, 21 MG QD TRANSDERMAL, 14 MG QD TRANSDERMAL
     Route: 062
     Dates: start: 20091001, end: 20091001
  3. NICOTINE TRANSDERMAL SYSTEM (7 MG, 21 MG, 14 MG) [Suspect]
     Indication: DRUG USE FOR UNKNOWN INDICATION
     Dosage: 7 MG QD TRANSDERMAL, 21 MG QD TRANSDERMAL, 14 MG QD TRANSDERMAL
     Route: 062
     Dates: start: 20091001, end: 20091015
  4. LIBRAX [Concomitant]
  5. ZOLOFT [Concomitant]

REACTIONS (5)
  - BLOOD POTASSIUM DECREASED [None]
  - BLOOD PRESSURE INCREASED [None]
  - HEADACHE [None]
  - NECK PAIN [None]
  - SWELLING [None]
